FAERS Safety Report 5881155-9 (Version None)
Quarter: 2008Q3

REPORT INFORMATION
  Report Type: 
  Country: None (occurrence: None)
  Receive Date: 20080912
  Receipt Date: 20080814
  Transmission Date: 20090109
  Serious: No
  Sender: FDA-Public Use
  Company Number: US-ABBOTT-08P-163-0458899-00

PATIENT
  Sex: Female
  Weight: 66.738 kg

DRUGS (8)
  1. HUMIRA [Suspect]
     Indication: CROHN'S DISEASE
     Dosage: 4 INJECTIONS
     Route: 058
     Dates: start: 20080425, end: 20080601
  2. HUMIRA [Suspect]
     Route: 058
     Dates: start: 20080601, end: 20080718
  3. BUDESONIDE [Concomitant]
     Indication: CROHN'S DISEASE
     Dosage: 3 QAM X 6WKS; 2 QAM X 2WKS
     Dates: start: 20080729
  4. FENOFIBRATE [Concomitant]
     Indication: BLOOD TRIGLYCERIDES
     Route: 048
  5. VALIUM [Concomitant]
     Indication: FEELING OF RELAXATION
     Route: 048
     Dates: start: 20050101
  6. FISH OIL [Concomitant]
     Indication: DRUG USE FOR UNKNOWN INDICATION
  7. MULTIVIT [Concomitant]
     Indication: DRUG USE FOR UNKNOWN INDICATION
  8. ACETYLSALICYLIC ACID SRT [Concomitant]
     Indication: PROPHYLAXIS
     Route: 048

REACTIONS (8)
  - CHILLS [None]
  - CROHN'S DISEASE [None]
  - DRUG INEFFECTIVE [None]
  - GASTROINTESTINAL PAIN [None]
  - NERVOUS SYSTEM DISORDER [None]
  - PAIN [None]
  - PYREXIA [None]
  - UNEVALUABLE EVENT [None]
